FAERS Safety Report 4301304-3 (Version None)
Quarter: 2004Q1

REPORT INFORMATION
  Report Type: 
  Country: None (occurrence: None)
  Receive Date: 20040220
  Receipt Date: 20040220
  Transmission Date: 20041129
  Serious: Yes (Hospitalization)
  Sender: FDA-Public Use
  Company Number: None

PATIENT
  Sex: Male

DRUGS (7)
  1. TAPAZOLE [Suspect]
     Indication: THYROIDITIS
     Dosage: 10 MG PO BID
     Route: 048
     Dates: start: 20030901, end: 20031103
  2. ARICEPT [Concomitant]
  3. COUMADIN [Concomitant]
  4. DIGITEK [Concomitant]
  5. LISINOPRIL [Concomitant]
  6. LOPRESSOR [Concomitant]
  7. STRATTERA [Concomitant]

REACTIONS (2)
  - FEBRILE NEUTROPENIA [None]
  - HYPERTHYROIDISM [None]
